FAERS Safety Report 14120526 (Version 1)
Quarter: 2017Q4

REPORT INFORMATION
  Report Type: Spontaneous
  Country: JO (occurrence: JO)
  Receive Date: 20171024
  Receipt Date: 20171024
  Transmission Date: 20180321
  Serious: Yes (Other)
  Sender: FDA-Public Use
  Company Number: JO-WEST-WARD PHARMACEUTICALS CORP.-JO-H14001-17-04056

PATIENT
  Sex: Male

DRUGS (3)
  1. AMOCLAN [Suspect]
     Active Substance: AMOXICILLIN\CLAVULANIC ACID
     Indication: PRODUCT USED FOR UNKNOWN INDICATION
     Route: 048
  2. SERODASE [Suspect]
     Active Substance: SERRAPEPTASE
     Indication: PRODUCT USED FOR UNKNOWN INDICATION
     Route: 048
  3. CEFUTIL [Suspect]
     Active Substance: CEFUROXIME AXETIL
     Indication: PRODUCT USED FOR UNKNOWN INDICATION
     Route: 048

REACTIONS (2)
  - Suicide attempt [Recovered/Resolved]
  - Loss of consciousness [Recovered/Resolved]
